FAERS Safety Report 4894918-3 (Version None)
Quarter: 2006Q1

REPORT INFORMATION
  Report Type: 
  Country: None (occurrence: None)
  Receive Date: 20060130
  Receipt Date: 20050309
  Transmission Date: 20060701
  Serious: No
  Sender: FDA-Public Use
  Company Number: US-BRISTOL-MYERS SQUIBB COMPANY-12891552

PATIENT
  Age: 66 Year
  Sex: Female
  Weight: 77 kg

DRUGS (3)
  1. GLUCOPHAGE [Suspect]
     Indication: DIABETES MELLITUS
     Route: 048
     Dates: start: 20041001, end: 20050101
  2. ASPIRIN [Concomitant]
  3. CORTISONE ACETATE TAB [Concomitant]
     Dates: start: 20050101

REACTIONS (2)
  - DYSGEUSIA [None]
  - STOMACH DISCOMFORT [None]
